FAERS Safety Report 10204851 (Version 1)
Quarter: 2014Q2

REPORT INFORMATION
  Report Type: Spontaneous
  Country: US (occurrence: None)
  Receive Date: 20140527
  Receipt Date: 20140527
  Transmission Date: 20141212
  Serious: Yes (Disabling)
  Sender: FDA-Public Use
  Company Number: None

PATIENT
  Age: 70 Year
  Sex: Male
  Weight: 81.65 kg

DRUGS (9)
  1. AMOXICILLIN CLAVULANATE [Suspect]
     Indication: BRONCHITIS
     Route: 048
     Dates: start: 20140507, end: 20140516
  2. VIREAD [Concomitant]
  3. OMPRAZOLE [Concomitant]
  4. UBIQUINOL [Concomitant]
  5. PROBIOTICS [Concomitant]
  6. FISH OIL [Concomitant]
  7. MILK THISTLE [Concomitant]
  8. VITAMIN C [Concomitant]
  9. ASTAXANTHIN [Concomitant]

REACTIONS (4)
  - Rash pruritic [None]
  - Joint stiffness [None]
  - Arthralgia [None]
  - Movement disorder [None]
